FAERS Safety Report 18820538 (Version 1)
Quarter: 2021Q1

REPORT INFORMATION
  Report Type: Spontaneous
  Country: CA (occurrence: CA)
  Receive Date: 20210202
  Receipt Date: 20210202
  Transmission Date: 20210419
  Serious: Yes (Other)
  Sender: FDA-Public Use
  Company Number: CA-TEVA-2021-CA-1874834

PATIENT
  Age: 40 Year
  Sex: Female

DRUGS (12)
  1. CALCIUM [Concomitant]
     Active Substance: CALCIUM
  2. FOLIC ACID. [Concomitant]
     Active Substance: FOLIC ACID
  3. VENTOLIN [Concomitant]
     Active Substance: ALBUTEROL SULFATE
  4. ADVAIR HFA [Concomitant]
     Active Substance: FLUTICASONE PROPIONATE\SALMETEROL XINAFOATE
  5. CYANOCOBALAMIN. [Concomitant]
     Active Substance: CYANOCOBALAMIN
  6. OMEGA 3 [FISH OIL] [Concomitant]
     Active Substance: FISH OIL
  7. VITAMIN D [Concomitant]
     Active Substance: VITAMIN D NOS
  8. CELEBREX [Concomitant]
     Active Substance: CELECOXIB
  9. METHOTREXATE. [Suspect]
     Active Substance: METHOTREXATE
     Indication: PRODUCT USED FOR UNKNOWN INDICATION
     Route: 058
  10. PANTOPRAZOLE [Concomitant]
     Active Substance: PANTOPRAZOLE
  11. VITAMINS NOS [Concomitant]
     Active Substance: VITAMINS
  12. XELJANZ [Concomitant]
     Active Substance: TOFACITINIB CITRATE
     Indication: RHEUMATOID ARTHRITIS
     Dosage: 10 MILLIGRAM DAILY;
     Route: 048

REACTIONS (14)
  - Abdominal distension [Recovered/Resolved]
  - Decreased appetite [Recovered/Resolved]
  - Haematochezia [Recovered/Resolved]
  - Weight decreased [Recovered/Resolved]
  - Petechiae [Recovered/Resolved]
  - Off label use [Recovered/Resolved]
  - Product use issue [Recovered/Resolved]
  - Inflammatory bowel disease [Recovered/Resolved]
  - Night sweats [Recovered/Resolved]
  - Product dose omission issue [Recovered/Resolved]
  - Abdominal pain [Recovered/Resolved]
  - Vomiting [Recovered/Resolved]
  - Nausea [Recovered/Resolved]
  - Painful respiration [Recovered/Resolved]
